FAERS Safety Report 10223426 (Version 1)
Quarter: 2014Q2

REPORT INFORMATION
  Report Type: Spontaneous
  Country: US (occurrence: None)
  Receive Date: 20140605
  Receipt Date: 20140605
  Transmission Date: 20141212
  Serious: Yes (Hospitalization, Other)
  Sender: FDA-Public Use
  Company Number: COL_16128_2014

PATIENT
  Age: 66 Year
  Sex: Male

DRUGS (1)
  1. SODIUM MONOFLUOROPHOSPHATE [Suspect]
     Indication: PRODUCT USED FOR UNKNOWN INDICATION
     Dosage: COVER THE HEAD OF TOOTHBRUSH/TID/ORAL
     Route: 048
     Dates: start: 201303, end: 201403

REACTIONS (4)
  - Gingival cancer [None]
  - Toothache [None]
  - Dental caries [None]
  - Tooth extraction [None]
